FAERS Safety Report 8592119-9 (Version None)
Quarter: 2012Q3

REPORT INFORMATION
  Report Type: 
  Country: None (occurrence: None)
  Receive Date: 20120814
  Receipt Date: 20120808
  Transmission Date: 20120928
  Serious: Yes (Other)
  Sender: FDA-Public Use
  Company Number: JP-VERTEX PHARMACEUTICALS INC.-AE-2012-006232

PATIENT
  Age: 63 Year
  Sex: Female

DRUGS (6)
  1. TELAVIC [Suspect]
     Indication: HEPATITIS C
     Route: 048
     Dates: start: 20120315, end: 20120318
  2. PEG-INTRON [Concomitant]
     Indication: HEPATITIS C
     Route: 058
     Dates: start: 20120315, end: 20120615
  3. REBETOL [Concomitant]
     Indication: HEPATITIS C
     Route: 048
     Dates: start: 20120315, end: 20120406
  4. PRIMPERAN TAB [Concomitant]
     Route: 048
     Dates: start: 20120406, end: 20120615
  5. REBETOL [Concomitant]
     Route: 048
     Dates: start: 20120406, end: 20120615
  6. OLOPATADINE HCL [Concomitant]
     Route: 048

REACTIONS (1)
  - GENERALISED ERYTHEMA [None]
